FAERS Safety Report 25239423 (Version 1)
Quarter: 2025Q2

REPORT INFORMATION
  Report Type: Spontaneous
  Country: PT (occurrence: PT)
  Receive Date: 20250425
  Receipt Date: 20250425
  Transmission Date: 20250717
  Serious: Yes (Other)
  Sender: FRESENIUS KABI
  Company Number: None

PATIENT
  Age: 50 Year
  Sex: Female
  Weight: 77 kg

DRUGS (6)
  1. CARBOPLATIN [Suspect]
     Active Substance: CARBOPLATIN
     Indication: Breast neoplasm
     Dosage: CARBOPLATIN 173MG CYCLE 21/21 DAYS DAYS 1, 8 AND 15?FOA: CONCENTRATE FOR SOLUTION FOR INFUSION
     Route: 042
     Dates: start: 20250218, end: 20250218
  2. Dexchloropheniramine [Dexchlorpheniramine] [Concomitant]
     Indication: Chemotherapy side effect prophylaxis
     Dosage: FOA: SOLUTION FOR INJECTION
     Route: 042
     Dates: start: 20250218, end: 20250218
  3. ONDANSETRON [Concomitant]
     Active Substance: ONDANSETRON
     Indication: Chemotherapy side effect prophylaxis
     Dosage: PRE-MEDICATION CHEMOTHERAPY
     Dates: start: 20250218, end: 20250218
  4. DEXAMETHASONE [Concomitant]
     Active Substance: DEXAMETHASONE
     Indication: Chemotherapy side effect prophylaxis
     Dosage: PRE-MEDICATION CHEMOTHERAPY
     Dates: start: 20250218, end: 20250218
  5. PANTOPRAZOLE [Concomitant]
     Active Substance: PANTOPRAZOLE
     Indication: Chemotherapy side effect prophylaxis
     Dosage: PRE-MEDICATION CHEMOTHERAPY
     Dates: start: 20250218, end: 20250218
  6. Paclitaxel Aurovitas [Paclitaxel] [Concomitant]
     Indication: Breast neoplasm
     Dosage: FOA: CONCENTRATE FOR SOLUTION FOR INFUSION
     Route: 042
     Dates: start: 20250218, end: 20250218

REACTIONS (1)
  - Rash [Recovered/Resolved]

NARRATIVE: CASE EVENT DATE: 20250409
